FAERS Safety Report 9613509 (Version 2)
Quarter: 2013Q4

REPORT INFORMATION
  Report Type: Spontaneous
  Country: US (occurrence: US)
  Receive Date: 20131010
  Receipt Date: 20131017
  Transmission Date: 20140711
  Serious: Yes (Hospitalization, Other)
  Sender: FDA-Public Use
  Company Number: US-GILEAD-2013-0085174

PATIENT
  Sex: Male

DRUGS (15)
  1. LETAIRIS [Suspect]
     Indication: PULMONARY ARTERIAL HYPERTENSION
     Dosage: 10 MG, QD
     Dates: start: 20110321
  2. REVATIO [Concomitant]
     Indication: PULMONARY ARTERIAL HYPERTENSION
     Dosage: 40 MG, TID
     Route: 048
  3. NEXIUM                             /01479302/ [Concomitant]
     Indication: GASTROOESOPHAGEAL REFLUX DISEASE
     Dosage: 40 MG, QD
     Route: 048
  4. HYDRALAZINE [Concomitant]
     Dosage: 25 MG, TID
     Route: 048
  5. LISINOPRIL [Concomitant]
     Dosage: 20 MG, QD
     Route: 048
  6. METOPROLOL [Concomitant]
     Dosage: 0.5 DF, BID
     Route: 048
  7. OS-CAL FORTE [Concomitant]
     Dosage: 1 DF, QD
     Route: 048
  8. INSULIN N [Concomitant]
     Dosage: 26 IU, QD
     Route: 048
  9. INSULIN N [Concomitant]
     Dosage: UNK UNK, QHS
     Route: 048
  10. ASA [Concomitant]
     Dosage: 81 MG, QD
     Route: 048
  11. EFFIENT [Concomitant]
     Dosage: 10 MG, QD
     Route: 048
  12. CRESTOR [Concomitant]
     Dosage: 20 MG, QD
     Route: 048
  13. PREDNISONE [Concomitant]
     Indication: CONNECTIVE TISSUE DISORDER
     Dosage: 1 MG, QD
     Route: 048
  14. PREDNISONE [Concomitant]
     Dosage: 10 MG, QD
     Route: 048
  15. FERROUS SULFATE [Concomitant]
     Indication: ANAEMIA
     Dosage: 1 DF, QD
     Route: 048

REACTIONS (1)
  - Coronary artery bypass [Recovered/Resolved]
